FAERS Safety Report 20481638 (Version 1)
Quarter: 2022Q1

REPORT INFORMATION
  Report Type: Spontaneous
  Country: CN (occurrence: CN)
  Receive Date: 20220216
  Receipt Date: 20220216
  Transmission Date: 20220423
  Serious: Yes (Other)
  Sender: FDA-Public Use
  Company Number: CN-PFIZER INC-202200214759

PATIENT
  Age: 72 Year
  Sex: Male

DRUGS (1)
  1. METHYLPREDNISOLONE [Suspect]
     Active Substance: METHYLPREDNISOLONE
     Indication: Osteoarthritis
     Dosage: 4 MG, 1X/DAY
     Route: 048
     Dates: start: 20211222, end: 20211223

REACTIONS (5)
  - Mental disorder [Recovering/Resolving]
  - Language disorder [Recovering/Resolving]
  - Logorrhoea [Recovering/Resolving]
  - Initial insomnia [Recovering/Resolving]
  - Agitation [Recovering/Resolving]

NARRATIVE: CASE EVENT DATE: 20211223
